FAERS Safety Report 20475510 (Version 1)
Quarter: 2022Q1

REPORT INFORMATION
  Report Type: Other
  Country: US (occurrence: US)
  Receive Date: 20220215
  Receipt Date: 20220215
  Transmission Date: 20220423
  Serious: Yes (Hospitalization)
  Sender: FDA-Public Use
  Company Number: US-HLS-202200223

PATIENT
  Age: 60 Decade
  Sex: Female

DRUGS (2)
  1. CLOZAPINE [Suspect]
     Active Substance: CLOZAPINE
     Indication: Schizophrenia
     Dosage: (150 MG IN THE MORNING AND 250 MG AT BEDTIME), THEN CLOZAPINE REDUCE THE MORNING DOSE OF CLOZAPINE F
     Route: 065
  2. CINACALCET [Concomitant]
     Active Substance: CINACALCET
     Dosage: 30 MG 3 TIMES IN A WEEK AND LATER INCREASED TO?30MG DAILY.
     Route: 065

REACTIONS (6)
  - Torticollis [Recovered/Resolved]
  - Drug interaction [Unknown]
  - Dizziness [Unknown]
  - Hyperparathyroidism [Unknown]
  - Blood calcium increased [Recovered/Resolved]
  - Psychotic symptom [Unknown]
